FAERS Safety Report 5262478-3 (Version None)
Quarter: 2007Q1

REPORT INFORMATION
  Report Type: 
  Country: None (occurrence: None)
  Receive Date: 20070312
  Receipt Date: 20070302
  Transmission Date: 20070707
  Serious: Yes (Other)
  Sender: FDA-Public Use
  Company Number: DE-ROCHE-483866

PATIENT
  Age: 74 Year
  Sex: Male
  Weight: 81 kg

DRUGS (1)
  1. XELODA [Suspect]
     Dosage: GIVEN IN CYCLES.
     Route: 048
     Dates: start: 20061025, end: 20070213

REACTIONS (2)
  - CONJUNCTIVITIS [None]
  - CORNEAL DISORDER [None]
